FAERS Safety Report 7260171-9 (Version None)
Quarter: 2011Q1

REPORT INFORMATION
  Report Type: 
  Country: None (occurrence: None)
  Receive Date: 20110130
  Receipt Date: 20101019
  Transmission Date: 20110831
  Serious: No
  Sender: FDA-Public Use
  Company Number: US-ABBOTT-10P-163-0679351-00

PATIENT
  Sex: Female
  Weight: 99.88 kg

DRUGS (1)
  1. HUMIRA [Suspect]
     Indication: PUSTULAR PSORIASIS
     Dosage: LOADING DOSE
     Route: 058
     Dates: start: 20101016

REACTIONS (3)
  - SKIN FISSURES [None]
  - SKIN DISCOMFORT [None]
  - PUSTULAR PSORIASIS [None]
